FAERS Safety Report 7784261-7 (Version None)
Quarter: 2011Q3

REPORT INFORMATION
  Report Type: 
  Country: None (occurrence: None)
  Receive Date: 20110928
  Receipt Date: 20110922
  Transmission Date: 20111222
  Serious: Yes (Hospitalization, Other)
  Sender: FDA-Public Use
  Company Number: US-TEVA-301956USA

PATIENT
  Sex: Female

DRUGS (1)
  1. COPAXONE [Suspect]
     Indication: MULTIPLE SCLEROSIS
     Dosage: 20 MILLIGRAM;
     Route: 058
     Dates: start: 20101211, end: 20110912

REACTIONS (3)
  - LEFT ATRIAL DILATATION [None]
  - IMMEDIATE POST-INJECTION REACTION [None]
  - SINUS TACHYCARDIA [None]
